FAERS Safety Report 5306042-6 (Version None)
Quarter: 2007Q2

REPORT INFORMATION
  Report Type: 
  Country: None (occurrence: None)
  Receive Date: 20070424
  Receipt Date: 20070123
  Transmission Date: 20071010
  Serious: Yes (Hospitalization)
  Sender: FDA-Public Use
  Company Number: GB-ROCHE-493059

PATIENT
  Age: 55 Year
  Sex: Male

DRUGS (2)
  1. CAPECITABINE [Suspect]
     Dosage: GIVEN FOR 14 DAYS FOLLOWED BY A WEEK REST (THREE-WEEK-CYLCE).
     Route: 048
     Dates: start: 20030804, end: 20030810
  2. GEMCITABINE HCL [Suspect]
     Dosage: GIVEN ON DAYS ONE AND EIGHT OF A THREE WEEK CYCLE.
     Route: 042
     Dates: start: 20030804, end: 20030804

REACTIONS (2)
  - CHILLS [None]
  - PYREXIA [None]
